FAERS Safety Report 9162925 (Version 2)
Quarter: 2013Q1

REPORT INFORMATION
  Report Type: Spontaneous
  Country: MX (occurrence: None)
  Receive Date: 20130228
  Receipt Date: 20130307
  Transmission Date: 20140127
  Serious: Yes (Hospitalization)
  Sender: FDA-Public Use
  Company Number: LIT-008-13-MX

PATIENT
  Age: 6 Year
  Sex: Male

DRUGS (2)
  1. HUMAN IMMUNOGLOBULIN G [Suspect]
     Indication: KAWASAKI^S DISEASE
     Route: 042
  2. ACETYLSALICYLIC ACID [Concomitant]

REACTIONS (5)
  - VIth nerve paralysis [None]
  - Skin exfoliation [None]
  - Ocular vasculitis [None]
  - Diplopia [None]
  - Optic neuritis [None]
